FAERS Safety Report 5525093-X (Version None)
Quarter: 2007Q4

REPORT INFORMATION
  Report Type: 
  Country: None (occurrence: None)
  Receive Date: 20071119
  Receipt Date: 20071113
  Transmission Date: 20080405
  Serious: Yes (Hospitalization)
  Sender: FDA-Public Use
  Company Number: 2007SP021931

PATIENT
  Age: 67 Year
  Sex: Female
  Weight: 39 kg

DRUGS (3)
  1. PEG-INTRON [Suspect]
     Indication: HEPATITIS C
     Dosage: 60 MCG; QW; SC
     Route: 058
     Dates: start: 20070919, end: 20071022
  2. REBETOL [Suspect]
     Indication: HEPATITIS C
     Dosage: 400 MG; QD; PO
     Route: 048
     Dates: start: 20070919, end: 20071022
  3. VOLTAREN [Concomitant]

REACTIONS (4)
  - ALTERED STATE OF CONSCIOUSNESS [None]
  - FALL [None]
  - SUBARACHNOID HAEMORRHAGE [None]
  - TRAUMATIC INTRACRANIAL HAEMORRHAGE [None]
